FAERS Safety Report 16148164 (Version 2)
Quarter: 2019Q3

REPORT INFORMATION
  Report Type: Spontaneous
  Country: DE (occurrence: DE)
  Receive Date: 20190402
  Receipt Date: 20190812
  Transmission Date: 20191004
  Serious: Yes (Death, Other)
  Sender: FDA-Public Use
  Company Number: DE-PFIZER INC-2019141229

PATIENT
  Age: 81 Year
  Sex: Female

DRUGS (2)
  1. IMMUNOSPORIN [Interacting]
     Active Substance: CYCLOSPORINE
     Indication: SKIN DISORDER
     Dosage: 2.5 MG/KG, 1X/DAY
  2. METHOTREXATE SODIUM. [Suspect]
     Active Substance: METHOTREXATE SODIUM
     Indication: SKIN DISORDER
     Dosage: UNK

REACTIONS (8)
  - Pneumonia [Unknown]
  - Drug interaction [Unknown]
  - Cardiac failure [Fatal]
  - Renal failure [Unknown]
  - Deep vein thrombosis [Unknown]
  - Off label use [Unknown]
  - Product use in unapproved indication [Unknown]
  - Infection [Unknown]
